FAERS Safety Report 4804349-X (Version None)
Quarter: 2005Q4

REPORT INFORMATION
  Report Type: 
  Country: None (occurrence: None)
  Receive Date: 20051017
  Receipt Date: 20051005
  Transmission Date: 20060501
  Serious: Yes (Other)
  Sender: FDA-Public Use
  Company Number: 2005138867

PATIENT
  Sex: Male

DRUGS (1)
  1. GEODON [Suspect]
     Indication: BIPOLAR DISORDER
     Dosage: 160 MG (80 MG, 2 IN 1 D),
     Dates: start: 20050101, end: 20050101

REACTIONS (3)
  - MENTAL IMPAIRMENT [None]
  - PARKINSON'S DISEASE [None]
  - TREMOR [None]
